FAERS Safety Report 8579819 (Version 4)
Quarter: 2012Q4

REPORT INFORMATION
  Report Type: 
  Country: US (occurrence: US)
  Receive Date: 20120525
  Receipt Date: 20120831
  Transmission Date: 20130627
  Serious: Yes (Other)
  Sender: FDA-Public Use
  Company Number: US-JNJFOC-20120308207

PATIENT
  Age: 8 None
  Sex: Male
  Weight: 24.04 kg

DRUGS (4)
  1. RISPERDAL [Suspect]
     Indication: IRRITABILITY
     Route: 048
     Dates: start: 2008, end: 201112
  2. RISPERDAL [Suspect]
     Indication: AGGRESSION
     Route: 048
     Dates: start: 2008, end: 201112
  3. RISPERDAL [Suspect]
     Indication: AUTISM
     Route: 048
     Dates: start: 2008, end: 201112
  4. RISPERDAL [Suspect]
     Indication: ATTENTION DEFICIT/HYPERACTIVITY DISORDER
     Route: 048
     Dates: start: 2008, end: 201112

REACTIONS (5)
  - Gynaecomastia [Unknown]
  - Weight increased [Unknown]
  - Dyskinesia [Unknown]
  - Bone density decreased [Unknown]
  - Agitation [Recovering/Resolving]
